FAERS Safety Report 4716825-9 (Version None)
Quarter: 2005Q3

REPORT INFORMATION
  Report Type: 
  Country: None (occurrence: None)
  Receive Date: 20050714
  Receipt Date: 20050629
  Transmission Date: 20060218
  Serious: Yes (Hospitalization)
  Sender: FDA-Public Use
  Company Number: 214948

PATIENT
  Age: 42 Year
  Sex: Male
  Weight: 53 kg

DRUGS (7)
  1. RITUXAN [Suspect]
     Indication: NON-HODGKIN'S LYMPHOMA
     Dosage: 580 MG, INTRAVENOUS
     Route: 042
     Dates: start: 20020227, end: 20020514
  2. CYCLOPHOSPHAMIDE [Suspect]
     Indication: NON-HODGKIN'S LYMPHOMA
     Dosage: 900 MG,
     Dates: start: 20020301, end: 20020518
  3. ETOPOSIDE [Suspect]
     Indication: NON-HODGKIN'S LYMPHOMA
     Dosage: 78 MG,
     Dates: start: 20020301, end: 20020518
  4. CYTARABINE [Suspect]
     Indication: NON-HODGKIN'S LYMPHOMA
     Dosage: 1600 MG,
     Dates: start: 20020301, end: 20020518
  5. DECADRON (DEXAMETHAZONE) [Concomitant]
  6. LOXONIN (LOXOPROFEN SODIUM) [Concomitant]
  7. DEXCHLORPHENIRAMINE MALEATE [Concomitant]

REACTIONS (5)
  - JAUNDICE [None]
  - NEUTROPHIL COUNT DECREASED [None]
  - PLATELET COUNT DECREASED [None]
  - PYREXIA [None]
  - WHITE BLOOD CELL COUNT DECREASED [None]
